FAERS Safety Report 25023507 (Version 1)
Quarter: 2025Q1

REPORT INFORMATION
  Report Type: Spontaneous
  Country: AU (occurrence: None)
  Receive Date: 20250227
  Receipt Date: 20250227
  Transmission Date: 20250409
  Serious: Yes (Hospitalization, Other)
  Sender: FDA-CTU
  Company Number: None

PATIENT
  Age: 66 Year
  Sex: Male
  Weight: 80 kg

DRUGS (7)
  1. RINVOQ [Suspect]
     Active Substance: UPADACITINIB
  2. ENDEP [Concomitant]
     Active Substance: AMITRIPTYLINE HYDROCHLORIDE
  3. PANTOPRAZOLE SODIUM [Concomitant]
     Active Substance: PANTOPRAZOLE SODIUM
  4. LIPITOR [Concomitant]
     Active Substance: ATORVASTATIN CALCIUM
  5. PERINDOPRIL [Concomitant]
     Active Substance: PERINDOPRIL
  6. OLANZAPINE [Concomitant]
     Active Substance: OLANZAPINE
  7. CURCUMIN [Concomitant]
     Active Substance: CURCUMIN

REACTIONS (6)
  - Confusional state [None]
  - Depression [None]
  - Paranoia [None]
  - Psychotic disorder [None]
  - Aggression [None]
  - Intentional self-injury [None]

NARRATIVE: CASE EVENT DATE: 20250214
